FAERS Safety Report 13375212 (Version 3)
Quarter: 2017Q2

REPORT INFORMATION
  Report Type: Spontaneous
  Country: US (occurrence: US)
  Receive Date: 20170327
  Receipt Date: 20170626
  Transmission Date: 20170830
  Serious: No
  Sender: FDA-Public Use
  Company Number: US-CLOVIS ONCOLOGY-CLO-2017-000114

PATIENT
  Age: 56 Year
  Sex: Female

DRUGS (2)
  1. RUBRACA [Suspect]
     Active Substance: RUCAPARIB CAMSYLATE
     Indication: OVARIAN CANCER
     Dosage: 600 MG, BID
     Route: 048
     Dates: start: 20170225
  2. LEXAPRO [Concomitant]
     Active Substance: ESCITALOPRAM OXALATE
     Indication: PRODUCT USED FOR UNKNOWN INDICATION
     Dosage: 10 MG, QD
     Route: 048

REACTIONS (13)
  - Generalised oedema [Not Recovered/Not Resolved]
  - Memory impairment [Not Recovered/Not Resolved]
  - Carbohydrate antigen 125 increased [Unknown]
  - Initial insomnia [Unknown]
  - Neuropathy peripheral [Unknown]
  - Pruritus generalised [Not Recovered/Not Resolved]
  - Nausea [Unknown]
  - Fatigue [Not Recovered/Not Resolved]
  - Adverse event [Unknown]
  - Skin disorder [Recovered/Resolved]
  - Dysgeusia [Not Recovered/Not Resolved]
  - Vomiting [Not Recovered/Not Resolved]
  - Drug dose omission [Unknown]

NARRATIVE: CASE EVENT DATE: 2017
